FAERS Safety Report 19503519 (Version 1)
Quarter: 2021Q3

REPORT INFORMATION
  Report Type: Spontaneous
  Country: GB (occurrence: GB)
  Receive Date: 20210707
  Receipt Date: 20210707
  Transmission Date: 20211014
  Serious: Yes (Other)
  Sender: FDA-Public Use
  Company Number: GB-MYLANLABS-2021M1034471

PATIENT
  Age: 63 Year

DRUGS (1)
  1. SEMGLEE (INSULIN GLARGINE) [Suspect]
     Active Substance: INSULIN GLARGINE
     Indication: DIABETES MELLITUS
     Dosage: UNK UNK, QD (25UNITS ONCE DAILY)
     Route: 030
     Dates: start: 20210226

REACTIONS (2)
  - Incorrect dose administered by device [Recovered/Resolved]
  - Device issue [Recovered/Resolved]

NARRATIVE: CASE EVENT DATE: 20210604
